FAERS Safety Report 16904070 (Version 1)
Quarter: 2019Q4

REPORT INFORMATION
  Report Type: Spontaneous
  Country: GB (occurrence: GB)
  Receive Date: 20191010
  Receipt Date: 20191010
  Transmission Date: 20200122
  Serious: Yes (Life-Threatening, Hospitalization)
  Sender: FDA-Public Use
  Company Number: GB-MYLANLABS-2019M1095506

PATIENT
  Age: 50 Year
  Sex: Female
  Weight: 47 kg

DRUGS (3)
  1. OLANZAPINE. [Suspect]
     Active Substance: OLANZAPINE
     Indication: PRODUCT USED FOR UNKNOWN INDICATION
     Dosage: 5 MILLIGRAM, QD (AT NIGHT)
     Dates: start: 20190308
  2. ATENOLOL. [Concomitant]
     Active Substance: ATENOLOL
     Dosage: 2 DOSAGE FORM, QD (EACH MORNING)
     Dates: start: 20180924
  3. DIAZEPAM. [Concomitant]
     Active Substance: DIAZEPAM
     Dosage: ONE TO BE TAKEN THREE TIMES DAILY WHEN REQUIRED.
     Dates: start: 20181015

REACTIONS (2)
  - Hyponatraemia [Recovered/Resolved]
  - Seizure [Unknown]
